FAERS Safety Report 18277359 (Version 1)
Quarter: 2020Q3

REPORT INFORMATION
  Report Type: Spontaneous
  Country: US (occurrence: US)
  Receive Date: 20200917
  Receipt Date: 20200917
  Transmission Date: 20201103
  Serious: Yes (Hospitalization, Other)
  Sender: FDA-Public Use
  Company Number: US-JNJFOC-A-US2017-149727

PATIENT
  Age: 44 Year
  Sex: Female
  Weight: 86.26 kg

DRUGS (25)
  1. TADALAFIL. [Concomitant]
     Active Substance: TADALAFIL
  2. ACYCLOVIR. [Concomitant]
     Active Substance: ACYCLOVIR
  3. CLINDAMYCIN. [Concomitant]
     Active Substance: CLINDAMYCIN
  4. VELETRI [Suspect]
     Active Substance: EPOPROSTENOL
     Dosage: 35 NG/KG, PER MIN
     Route: 042
  5. WARFARIN [Concomitant]
     Active Substance: WARFARIN
  6. DILTIAZEM. [Concomitant]
     Active Substance: DILTIAZEM
  7. METHADONE HCL [Concomitant]
     Active Substance: METHADONE HYDROCHLORIDE
  8. VELETRI [Suspect]
     Active Substance: EPOPROSTENOL
     Dosage: 37.5 UNK
     Route: 042
  9. LOVENOX [Concomitant]
     Active Substance: ENOXAPARIN SODIUM
  10. VALACYCLOVIR HYDROCHLORIDE. [Concomitant]
     Active Substance: VALACYCLOVIR HYDROCHLORIDE
  11. OPSUMIT [Suspect]
     Active Substance: MACITENTAN
     Indication: PULMONARY ARTERIAL HYPERTENSION
     Dosage: 10 MG
     Route: 048
     Dates: start: 20160413
  12. SILDENAFIL. [Suspect]
     Active Substance: SILDENAFIL
     Indication: PRODUCT USED FOR UNKNOWN INDICATION
     Route: 065
  13. DULOXETINE HCL [Concomitant]
     Active Substance: DULOXETINE HYDROCHLORIDE
  14. SULFAMETHOXAZOLE AND TRIMETHOPRIM [Concomitant]
     Active Substance: SULFAMETHOXAZOLE\TRIMETHOPRIM
  15. VELETRI [Suspect]
     Active Substance: EPOPROSTENOL
     Dosage: 36.5 NG/KG, PER MIN
     Route: 042
  16. AZITHROMYCIN ANHYDROUS. [Concomitant]
     Active Substance: AZITHROMYCIN ANHYDROUS
  17. POTASSIUM CITRATE. [Concomitant]
     Active Substance: POTASSIUM CITRATE
  18. LEVOTHYROXINE. [Concomitant]
     Active Substance: LEVOTHYROXINE
  19. VELETRI [Suspect]
     Active Substance: EPOPROSTENOL
     Indication: PULMONARY ARTERIAL HYPERTENSION
     Dosage: 38 NG/KG, PER MIN
     Route: 042
  20. XARELTO [Concomitant]
     Active Substance: RIVAROXABAN
  21. SPIRONOLACTONE. [Concomitant]
     Active Substance: SPIRONOLACTONE
  22. ADEMPAS [Suspect]
     Active Substance: RIOCIGUAT
     Indication: PRODUCT USED FOR UNKNOWN INDICATION
     Route: 065
  23. NITROFURANTOIN MACROCRYSTALS [Concomitant]
     Active Substance: NITROFURANTOIN
  24. OXYCODONE HYDROCHLORIDE. [Concomitant]
     Active Substance: OXYCODONE HYDROCHLORIDE
  25. TRAZODONE HYDROCHLORIDE. [Concomitant]
     Active Substance: TRAZODONE HYDROCHLORIDE

REACTIONS (28)
  - Pulmonary hypertension [Unknown]
  - Product dose omission issue [Recovered/Resolved]
  - Pneumonia [Recovering/Resolving]
  - Multiple allergies [Unknown]
  - Treatment noncompliance [Unknown]
  - Catheter site discharge [Recovered/Resolved]
  - Nasopharyngitis [Unknown]
  - Device dislocation [Unknown]
  - Diarrhoea [Unknown]
  - Post procedural haemorrhage [Unknown]
  - Catheter site swelling [Recovered/Resolved]
  - Spinal operation [Unknown]
  - Catheter site mass [Unknown]
  - Weight decreased [Unknown]
  - Rash [Not Recovered/Not Resolved]
  - Catheter site infection [Unknown]
  - Cough [Unknown]
  - Vascular device infection [Recovered/Resolved]
  - Malaise [Not Recovered/Not Resolved]
  - Arthralgia [Unknown]
  - Catheter management [Unknown]
  - Abdominal pain upper [Unknown]
  - Abdominal discomfort [Unknown]
  - Memory impairment [Recovered/Resolved]
  - Dyspepsia [Unknown]
  - Headache [Recovered/Resolved]
  - Device connection issue [Unknown]
  - Pallor [Unknown]

NARRATIVE: CASE EVENT DATE: 20170130
